FAERS Safety Report 18843205 (Version 1)
Quarter: 2021Q1

REPORT INFORMATION
  Report Type: Report from Study
  Country: US (occurrence: US)
  Receive Date: 20210203
  Receipt Date: 20210203
  Transmission Date: 20210419
  Serious: No
  Sender: FDA-Public Use
  Company Number: US-EXELIXIS-CABO-20027344

PATIENT
  Sex: Male

DRUGS (10)
  1. MELATONIN [Concomitant]
     Active Substance: MELATONIN
     Dosage: UNK
  2. TEMAZEPAM. [Concomitant]
     Active Substance: TEMAZEPAM
     Dosage: UNK
  3. CABOMETYX [Suspect]
     Active Substance: CABOZANTINIB S-MALATE
     Indication: METASTASES TO LYMPH NODES
     Dosage: 20 MG, QD
     Route: 048
     Dates: start: 20190306
  4. REGLAN [Concomitant]
     Active Substance: METOCLOPRAMIDE HYDROCHLORIDE
     Dosage: UNK
  5. LISINOPRIL. [Concomitant]
     Active Substance: LISINOPRIL
     Dosage: UNK
  6. CREON [Concomitant]
     Active Substance: PANCRELIPASE AMYLASE\PANCRELIPASE LIPASE\PANCRELIPASE PROTEASE
     Dosage: UNK
  7. FLUOXETINE HCL [Concomitant]
     Active Substance: FLUOXETINE HYDROCHLORIDE
     Dosage: UNK
  8. PANTOPRAZOLE [Concomitant]
     Active Substance: PANTOPRAZOLE
     Dosage: UNK
  9. PLAVIX [Concomitant]
     Active Substance: CLOPIDOGREL BISULFATE
     Dosage: UNK
  10. PREDNISONE. [Concomitant]
     Active Substance: PREDNISONE
     Dosage: UNK

REACTIONS (3)
  - Rash [Not Recovered/Not Resolved]
  - Hepatic enzyme increased [Not Recovered/Not Resolved]
  - Off label use [Unknown]
